FAERS Safety Report 8408684 (Version 2)
Quarter: 2013Q2

REPORT INFORMATION
  Report Type: Spontaneous
  Country: US (occurrence: None)
  Receive Date: 20111227
  Receipt Date: 20120426
  Transmission Date: 20140414
  Serious: No
  Sender: FDA-Public Use
  Company Number: PHEH2011US07162

PATIENT
  Sex: Female

DRUGS (6)
  1. GILENYA [Suspect]
     Indication: MULTIPLE SCLEROSIS
     Dosage: 0.5 MG, QD
     Dates: start: 20111011
  2. FLUOXETINE (FLUOXETINE) [Concomitant]
  3. HYDROCHLOROHIAZIDE(HYDROCHLOROTHIAZIDE) [Concomitant]
  4. MEDAZINE  (CYCLIZINE HYDROCHLORIDE) [Concomitant]
  5. MODAFINIL (MODAFINIL) [Concomitant]
  6. SIMVASTATIN (SIMVASTATIN) [Concomitant]

REACTIONS (2)
  - DRY MOUTH [None]
  - NAUSEA [None]
